FAERS Safety Report 10286066 (Version 1)
Quarter: 2014Q3

REPORT INFORMATION
  Report Type: Spontaneous
  Country: US (occurrence: None)
  Receive Date: 20140703
  Receipt Date: 20140703
  Transmission Date: 20150326
  Serious: Yes (Hospitalization)
  Sender: FDA-Public Use
  Company Number: UNT-2014-002006

PATIENT
  Age: 69 Year
  Sex: Female
  Weight: 62.1 kg

DRUGS (1)
  1. TYVASO [Suspect]
     Active Substance: TREPROSTINIL
     Indication: PULMONARY ARTERIAL HYPERTENSION
     Route: 055
     Dates: start: 20130505

REACTIONS (3)
  - Headache [None]
  - Chest discomfort [None]
  - Colectomy [None]

NARRATIVE: CASE EVENT DATE: 20140328
